FAERS Safety Report 22283010 (Version 1)
Quarter: 2023Q2

REPORT INFORMATION
  Report Type: Spontaneous
  Country: NL (occurrence: NL)
  Receive Date: 20230504
  Receipt Date: 20230504
  Transmission Date: 20230722
  Serious: Yes (Life-Threatening, Hospitalization, Other)
  Sender: FDA-Public Use
  Company Number: GB-MLMSERVICE-20230414-4224856-1

PATIENT
  Age: 76 Year
  Sex: Female

DRUGS (2)
  1. ACYCLOVIR [Suspect]
     Active Substance: ACYCLOVIR
     Indication: Herpes zoster meningoencephalitis
     Dosage: UNK
     Route: 048
  2. ACYCLOVIR [Suspect]
     Active Substance: ACYCLOVIR
     Dosage: UNK
     Route: 042

REACTIONS (4)
  - Unresponsive to stimuli [Recovering/Resolving]
  - Confusional state [Recovering/Resolving]
  - Hallucination [Recovering/Resolving]
  - Myoclonus [Recovering/Resolving]
